FAERS Safety Report 14354626 (Version 1)
Quarter: 2018Q1

REPORT INFORMATION
  Report Type: Spontaneous
  Country: US (occurrence: US)
  Receive Date: 20180104
  Receipt Date: 20180104
  Transmission Date: 20180509
  Serious: Yes (Hospitalization)
  Sender: FDA-Public Use
  Company Number: None

PATIENT
  Age: 76 Year
  Sex: Male
  Weight: 86.5 kg

DRUGS (1)
  1. 5-FLUOROURACIL (5-FU) [Suspect]
     Active Substance: FLUOROURACIL
     Dates: end: 20160119

REACTIONS (4)
  - Pelvic abscess [None]
  - Pelvic pain [None]
  - Back pain [None]
  - Gastrointestinal anastomotic leak [None]

NARRATIVE: CASE EVENT DATE: 20160418
